FAERS Safety Report 10384951 (Version 1)
Quarter: 2014Q3

REPORT INFORMATION
  Report Type: Spontaneous
  Country: US (occurrence: US)
  Receive Date: 20140814
  Receipt Date: 20140814
  Transmission Date: 20150326
  Serious: Yes (Other)
  Sender: FDA-Public Use
  Company Number: PHHY2014US099629

PATIENT
  Age: 59 Year
  Sex: Male

DRUGS (24)
  1. DULOXETINE [Concomitant]
     Active Substance: DULOXETINE
  2. SENNA [Concomitant]
     Active Substance: SENNA LEAF\SENNOSIDES\SENNOSIDES A AND B
  3. CUBICIN [Suspect]
     Active Substance: DAPTOMYCIN
     Indication: OFF LABEL USE
  4. VANCOMYCIN HYDROCHLORIDE. [Suspect]
     Active Substance: VANCOMYCIN HYDROCHLORIDE
     Indication: PROPHYLAXIS
     Dosage: 2 G, UNK
  5. BISACODYL. [Concomitant]
     Active Substance: BISACODYL
  6. OXYCODONE [Concomitant]
     Active Substance: OXYCODONE
  7. MORPHINE [Concomitant]
     Active Substance: MORPHINE
  8. CUBICIN [Suspect]
     Active Substance: DAPTOMYCIN
     Indication: INFECTION
     Route: 042
  9. LISINOPRIL. [Concomitant]
     Active Substance: LISINOPRIL
     Dosage: UNK
  10. SIMVASTATIN. [Concomitant]
     Active Substance: SIMVASTATIN
  11. TAMSULOSIN [Concomitant]
     Active Substance: TAMSULOSIN
  12. ACETAMINOPHEN W/HYDROCODONE [Concomitant]
     Active Substance: ACETAMINOPHEN\HYDROCODONE
  13. DOCUSATE [Concomitant]
     Active Substance: DOCUSATE
  14. CUBICIN [Suspect]
     Active Substance: DAPTOMYCIN
     Indication: DEVICE RELATED INFECTION
  15. CEFAZOLIN [Concomitant]
     Active Substance: CEFAZOLIN
  16. CUBICIN [Suspect]
     Active Substance: DAPTOMYCIN
     Indication: STAPHYLOCOCCAL INFECTION
  17. CEFADROXIL. [Concomitant]
     Active Substance: CEFADROXIL
  18. CELECOXIB. [Concomitant]
     Active Substance: CELECOXIB
  19. PROCHLORPERAZINE. [Concomitant]
     Active Substance: PROCHLORPERAZINE
  20. CUBICIN [Suspect]
     Active Substance: DAPTOMYCIN
     Indication: PROPHYLAXIS
  21. CLONIDINE. [Concomitant]
     Active Substance: CLONIDINE
  22. ONDANSETRON [Concomitant]
     Active Substance: ONDANSETRON
  23. LABETALOL [Concomitant]
     Active Substance: LABETALOL\LABETALOL HYDROCHLORIDE
     Dosage: UNK
  24. RIVAROXABAN [Concomitant]
     Active Substance: RIVAROXABAN

REACTIONS (6)
  - Exfoliative rash [Unknown]
  - Dermatitis [Unknown]
  - Device related infection [Unknown]
  - Impaired healing [Unknown]
  - Constipation [Unknown]
  - Staphylococcal infection [Unknown]
